FAERS Safety Report 8326629-6 (Version None)
Quarter: 2012Q2

REPORT INFORMATION
  Report Type: 
  Country: None (occurrence: None)
  Receive Date: 20120501
  Receipt Date: 20090908
  Transmission Date: 20120825
  Serious: No
  Sender: FDA-Public Use
  Company Number: US-TEVA-2009010236

PATIENT
  Sex: Female
  Weight: 49.94 kg

DRUGS (9)
  1. NUVIGIL [Suspect]
     Route: 048
  2. ASPIRIN [Concomitant]
     Indication: ANTICOAGULANT THERAPY
  3. CLONIDINE [Concomitant]
     Indication: HYPERTENSION
  4. NUVIGIL [Suspect]
     Indication: SLEEP APNOEA SYNDROME
     Dosage: 150 MILLIGRAM;
     Route: 048
     Dates: start: 20090826, end: 20090907
  5. MULTI-VITAMIN [Concomitant]
     Indication: SUPPLEMENTATION THERAPY
  6. FOLIC ACID [Concomitant]
  7. LISINOPRIL [Concomitant]
     Indication: HYPERTENSION
  8. ATENOLOL [Concomitant]
     Indication: CARDIAC DISORDER
  9. TRIAZOLAM [Concomitant]
     Indication: INSOMNIA

REACTIONS (4)
  - ANXIETY [None]
  - NERVOUSNESS [None]
  - INSOMNIA [None]
  - INTENTIONAL DRUG MISUSE [None]
